FAERS Safety Report 7172685-0 (Version None)
Quarter: 2010Q4

REPORT INFORMATION
  Report Type: 
  Country: None (occurrence: None)
  Receive Date: 20101217
  Receipt Date: 20100312
  Transmission Date: 20110411
  Serious: No
  Sender: FDA-Public Use
  Company Number: US-AMGEN-KDL392028

PATIENT

DRUGS (4)
  1. ENBREL [Suspect]
     Indication: PRODUCT USED FOR UNKNOWN INDICATION
     Dosage: 50 MG, QWK
     Route: 058
     Dates: start: 20100207
  2. PREDNISONE [Concomitant]
     Dosage: 1 MG, UNK
     Route: 048
  3. KETOPROFEN [Concomitant]
     Dosage: 50 MG, UNK
     Route: 048
  4. FISH OIL [Concomitant]
     Dosage: UNK UNK, UNK
     Route: 048

REACTIONS (2)
  - LIP SWELLING [None]
  - ORAL PRURITUS [None]
